FAERS Safety Report 14078523 (Version 1)
Quarter: 2017Q4

REPORT INFORMATION
  Report Type: Report from Study
  Country: BR (occurrence: BR)
  Receive Date: 20171012
  Receipt Date: 20171012
  Transmission Date: 20180321
  Serious: Yes (Other)
  Sender: FDA-Public Use
  Company Number: PHHY2017BR141013

PATIENT
  Sex: Female
  Weight: 74 kg

DRUGS (6)
  1. ACLASTA [Suspect]
     Active Substance: ZOLEDRONIC ACID
     Indication: OSTEOPOROSIS
     Dosage: 1 DF (5MG/100ML), Q12MO
     Route: 042
     Dates: start: 20170504, end: 20170504
  2. PANTOPRAZOLE [Concomitant]
     Active Substance: PANTOPRAZOLE
     Indication: PROPHYLAXIS
     Route: 048
  3. PURAN [Concomitant]
     Active Substance: LEVOTHYROXINE SODIUM
     Indication: HYPOTHYROIDISM
     Route: 048
  4. SINVASTACOR [Concomitant]
     Active Substance: SIMVASTATIN
     Indication: CARDIAC DISORDER
     Route: 048
  5. LOSARTAN. [Concomitant]
     Active Substance: LOSARTAN
     Indication: HYPERTENSION
     Route: 048
  6. OSCAL D [Concomitant]
     Active Substance: CALCIUM CARBONATE\CHOLECALCIFEROL
     Indication: OSTEOPOROSIS
     Dosage: 500 OT, UNK
     Route: 048

REACTIONS (13)
  - Arthralgia [Recovered/Resolved]
  - Back pain [Unknown]
  - Pain in extremity [Unknown]
  - Peripheral swelling [Recovering/Resolving]
  - Rheumatic disorder [Unknown]
  - Sciatica [Unknown]
  - Weight decreased [Unknown]
  - Blood sodium decreased [Unknown]
  - Fall [Unknown]
  - Gait disturbance [Not Recovered/Not Resolved]
  - Body height decreased [Unknown]
  - Generalised oedema [Unknown]
  - Fracture [Unknown]
